FAERS Safety Report 24384984 (Version 1)
Quarter: 2024Q3

REPORT INFORMATION
  Report Type: Spontaneous
  Country: US (occurrence: None)
  Receive Date: 20240930
  Receipt Date: 20240930
  Transmission Date: 20241017
  Serious: Yes (Hospitalization)
  Sender: Public
  Company Number: None

PATIENT
  Age: 36 Year
  Sex: Male
  Weight: 65.25 kg

DRUGS (2)
  1. HERBALS\TETRAHYDROCANNABIPHOROL [Suspect]
     Active Substance: HERBALS\TETRAHYDROCANNABIPHOROL
     Dates: start: 20240923, end: 20240923
  2. OMEPRAZOLE [Concomitant]
     Active Substance: OMEPRAZOLE

REACTIONS (18)
  - Delusion [None]
  - Nonspecific reaction [None]
  - Palpitations [None]
  - Confusional state [None]
  - Mental impairment [None]
  - Vomiting projectile [None]
  - Gait inability [None]
  - Memory impairment [None]
  - Hypersomnia [None]
  - Mental impairment [None]
  - Speech disorder [None]
  - Thinking abnormal [None]
  - Fatigue [None]
  - Poor quality sleep [None]
  - Fatigue [None]
  - Fear [None]
  - Product formulation issue [None]
  - Suspected product tampering [None]

NARRATIVE: CASE EVENT DATE: 20240923
